FAERS Safety Report 4582812-7 (Version None)
Quarter: 2005Q1

REPORT INFORMATION
  Report Type: 
  Country: None (occurrence: None)
  Receive Date: 20050215
  Receipt Date: 20030908
  Transmission Date: 20050727
  Serious: Yes (Disabling)
  Sender: FDA-Public Use
  Company Number: US-ROCHE-346682

PATIENT
  Age: 53 Year
  Sex: Male

DRUGS (4)
  1. FUZEON [Suspect]
     Indication: HIV INFECTION
     Dosage: RECEIVED LESS THAN PRESCRIBED 1.0 CC DOSE ON THREE OCCASIONS.
     Route: 058
     Dates: start: 20030915, end: 20030915
  2. FUZEON [Suspect]
     Route: 058
     Dates: start: 20030412
  3. REYATAZ [Concomitant]
     Indication: HIV INFECTION
     Route: 048
     Dates: start: 20030412
  4. VIREAD [Concomitant]
     Indication: HIV INFECTION
     Route: 048
     Dates: start: 20030412

REACTIONS (7)
  - ASEPTIC NECROSIS BONE [None]
  - CONDITION AGGRAVATED [None]
  - INJECTION SITE FIBROSIS [None]
  - INJECTION SITE REACTION [None]
  - MEDICATION ERROR [None]
  - PHARMACEUTICAL PRODUCT COMPLAINT [None]
  - SPINAL FUSION SURGERY [None]
